FAERS Safety Report 6385694-6 (Version None)
Quarter: 2009Q4

REPORT INFORMATION
  Report Type: 
  Country: None (occurrence: None)
  Receive Date: 20091002
  Receipt Date: 20081023
  Transmission Date: 20100525
  Serious: No
  Sender: FDA-Public Use
  Company Number: US-ASTRAZENECA-2008UW23673

PATIENT
  Age: 67 Year
  Sex: Female
  Weight: 99.8 kg

DRUGS (6)
  1. ARIMIDEX [Suspect]
     Indication: BREAST CANCER
     Route: 048
     Dates: start: 20081009
  2. ATENOLOL [Concomitant]
  3. HYZAAR [Concomitant]
  4. NORVASC [Concomitant]
  5. SYNTHROID [Concomitant]
  6. COUMADIN [Concomitant]

REACTIONS (3)
  - FEELING ABNORMAL [None]
  - FLUSHING [None]
  - HYPERHIDROSIS [None]
